FAERS Safety Report 5025726-0 (Version None)
Quarter: 2006Q2

REPORT INFORMATION
  Report Type: 
  Country: None (occurrence: None)
  Receive Date: 20060614
  Receipt Date: 20060531
  Transmission Date: 20061013
  Serious: Yes (Life-Threatening, Hospitalization)
  Sender: FDA-Public Use
  Company Number: CH-AVENTIS-200616207GDDC

PATIENT
  Age: 26 Year
  Sex: Female
  Weight: 61 kg

DRUGS (1)
  1. EFLORNITHINE HYDROCHLORIDE [Suspect]
     Indication: ENCEPHALITIS
     Dosage: DOSE: UNK
     Dates: start: 20060327, end: 20060410

REACTIONS (2)
  - CATHETER SEPSIS [None]
  - CELLULITIS [None]
